FAERS Safety Report 6594016-7 (Version None)
Quarter: 2010Q1

REPORT INFORMATION
  Report Type: 
  Country: None (occurrence: None)
  Receive Date: 20100218
  Receipt Date: 20100218
  Transmission Date: 20100710
  Serious: No
  Sender: FDA-Public Use
  Company Number: None

PATIENT
  Age: 72 Year
  Sex: Female

DRUGS (2)
  1. HEPARIN [Suspect]
     Indication: ATRIAL FIBRILLATION
     Dosage: 144 UNITS PER IV
     Route: 042
     Dates: start: 20090303, end: 20090306
  2. HEPARIN [Suspect]
     Indication: DEEP VEIN THROMBOSIS
     Dosage: 144 UNITS PER IV
     Route: 042
     Dates: start: 20090303, end: 20090306

REACTIONS (1)
  - HEPARIN-INDUCED THROMBOCYTOPENIA [None]
